FAERS Safety Report 8261620-X (Version None)
Quarter: 2012Q1

REPORT INFORMATION
  Report Type: 
  Country: None (occurrence: None)
  Receive Date: 20120327
  Receipt Date: 20100223
  Transmission Date: 20120608
  Serious: Yes (Other)
  Sender: FDA-Public Use
  Company Number: PHEH2010US02666

PATIENT
  Age: 45 Year
  Sex: Male

DRUGS (9)
  1. ASPIRIN [Concomitant]
  2. GLEEVEC [Suspect]
     Indication: MALIGNANT MAST CELL NEOPLASM
     Dosage: 400 MG DAILY, ORAL
     Route: 048
  3. ZYRTEC [Concomitant]
  4. SINGULAIR [Concomitant]
  5. VITAMIN D [Concomitant]
  6. LUNESTA [Concomitant]
  7. LASIX [Concomitant]
  8. ANDROGEL [Concomitant]
  9. POTASSIUM CHLORIDE [Concomitant]

REACTIONS (2)
  - FLUID RETENTION [None]
  - WEIGHT INCREASED [None]
